FAERS Safety Report 21811142 (Version 1)
Quarter: 2022Q4

REPORT INFORMATION
  Report Type: Spontaneous
  Country: US (occurrence: None)
  Receive Date: 20221230
  Receipt Date: 20221230
  Transmission Date: 20230113
  Serious: Yes (Death)
  Sender: FDA-Public Use
  Company Number: None

PATIENT
  Sex: Female
  Weight: 78.93 kg

DRUGS (13)
  1. CAPECITABINE [Suspect]
     Active Substance: CAPECITABINE
     Indication: Colon cancer
     Dosage: FREQUENCY : TWICE A DAY;?
     Route: 048
  2. AMLODIPINE [Concomitant]
     Active Substance: AMLODIPINE BESYLATE
  3. ASPIRIN [Concomitant]
     Active Substance: ASPIRIN
  4. BETA CAROTENE [Concomitant]
     Active Substance: BETA CAROTENE
  5. FOLIC ACID [Concomitant]
     Active Substance: FOLIC ACID
  6. IBUPROFEN [Concomitant]
     Active Substance: IBUPROFEN
  7. LISINOPRIL [Concomitant]
     Active Substance: LISINOPRIL
  8. HYDROCHLOROTHIAZIDE [Concomitant]
     Active Substance: HYDROCHLOROTHIAZIDE
  9. MAGNESIUM ASPARTATE [Concomitant]
     Active Substance: MAGNESIUM ASPARTATE
  10. VITAMINS [Concomitant]
     Active Substance: VITAMINS
  11. POTASSIUM CHLORIDE [Concomitant]
     Active Substance: POTASSIUM CHLORIDE
  12. VITAMIN D3 [Concomitant]
     Active Substance: CHOLECALCIFEROL
  13. ZINC ACETATE [Concomitant]
     Active Substance: ZINC ACETATE

REACTIONS (1)
  - Death [None]
